FAERS Safety Report 4602110-2 (Version None)
Quarter: 2005Q2

REPORT INFORMATION
  Report Type: 
  Country: None (occurrence: None)
  Receive Date: 20050214
  Receipt Date: 20040720
  Transmission Date: 20051028
  Serious: Yes (Hospitalization)
  Sender: FDA-Public Use
  Company Number: 8005676

PATIENT
  Age: 74 Year
  Sex: Male

DRUGS (3)
  1. KEPPRA [Suspect]
     Dosage: 250 MG 2/D PO
     Route: 048
     Dates: start: 20030701
  2. MEDROL [Concomitant]
  3. DILANTIN [Concomitant]

REACTIONS (2)
  - PYREXIA [None]
  - VOMITING [None]
